FAERS Safety Report 5748055-6 (Version None)
Quarter: 2008Q2

REPORT INFORMATION
  Report Type: 
  Country: None (occurrence: None)
  Receive Date: 20080523
  Receipt Date: 20080512
  Transmission Date: 20081010
  Serious: Yes (Hospitalization)
  Sender: FDA-Public Use
  Company Number: CA-ELI_LILLY_AND_COMPANY-CA200804003865

PATIENT
  Age: 68 Year
  Sex: Male

DRUGS (7)
  1. FORTEO [Suspect]
     Indication: OSTEOPOROSIS
     Dosage: 20 UG, DAILY (1/D)
     Route: 058
     Dates: start: 20061117, end: 20080409
  2. PANTOPRAZOLE SODIUM [Concomitant]
  3. COUMADIN [Concomitant]
  4. TESTOSTERONE [Concomitant]
  5. CRESTOR [Concomitant]
  6. FLOMAX [Concomitant]
  7. PROSCAR [Concomitant]

REACTIONS (1)
  - NEPHROLITHIASIS [None]
